FAERS Safety Report 4564363-9 (Version None)
Quarter: 2005Q1

REPORT INFORMATION
  Report Type: 
  Country: None (occurrence: None)
  Receive Date: 20050128
  Receipt Date: 20041006
  Transmission Date: 20050727
  Serious: Yes (Congenital Anomaly)
  Sender: FDA-Public Use
  Company Number: CA-GLAXOSMITHKLINE-B0347474A

PATIENT

DRUGS (1)
  1. ONDANSETRON [Suspect]
     Indication: VOMITING

REACTIONS (2)
  - DRUG EXPOSURE DURING PREGNANCY [None]
  - URINARY TRACT DISORDER [None]
